FAERS Safety Report 5799312-9 (Version None)
Quarter: 2008Q3

REPORT INFORMATION
  Report Type: 
  Country: None (occurrence: None)
  Receive Date: 20080702
  Receipt Date: 20080623
  Transmission Date: 20090109
  Serious: Yes (Other)
  Sender: FDA-Public Use
  Company Number: IL-PFIZER INC-2008052097

PATIENT
  Age: 32 Year
  Sex: Female

DRUGS (1)
  1. LUSTRAL [Suspect]
     Indication: DEPRESSION

REACTIONS (1)
  - HALLUCINATION, AUDITORY [None]
